FAERS Safety Report 7044835-8 (Version None)
Quarter: 2010Q4

REPORT INFORMATION
  Report Type: 
  Country: None (occurrence: None)
  Receive Date: 20101014
  Receipt Date: 20101005
  Transmission Date: 20110411
  Serious: Yes (Other)
  Sender: FDA-Public Use
  Company Number: US-JNJFOC-20101002192

PATIENT
  Age: 41 Year
  Sex: Female
  Weight: 68.04 kg

DRUGS (1)
  1. EXTRA STRENGTH TYLENOL PM [Suspect]
     Indication: PAIN
     Dosage: 1 GELTAB AT BEDTIME, ONE TIME
     Route: 048

REACTIONS (3)
  - DIPLOPIA [None]
  - DIZZINESS [None]
  - VISION BLURRED [None]
